FAERS Safety Report 7227392-2 (Version None)
Quarter: 2011Q1

REPORT INFORMATION
  Report Type: 
  Country: None (occurrence: None)
  Receive Date: 20110111
  Receipt Date: 20110111
  Transmission Date: 20110831
  Serious: Yes (Hospitalization)
  Sender: FDA-Public Use
  Company Number: None

PATIENT
  Age: 15 Year
  Sex: Female
  Weight: 72.5755 kg

DRUGS (1)
  1. PROAIR HFA [Suspect]
     Indication: ASTHMA EXERCISE INDUCED
     Dosage: 2 PUFFS PRN OTHER
     Route: 050
     Dates: start: 20101028, end: 20101029

REACTIONS (13)
  - CHEST PAIN [None]
  - PALPITATIONS [None]
  - TREMOR [None]
  - EYE MOVEMENT DISORDER [None]
  - PRODUCT QUALITY ISSUE [None]
  - ANXIETY [None]
  - GAIT DISTURBANCE [None]
  - PAIN [None]
  - NAUSEA [None]
  - TOXICITY TO VARIOUS AGENTS [None]
  - MIGRAINE [None]
  - FATIGUE [None]
  - DIZZINESS [None]
